FAERS Safety Report 6140393-0 (Version None)
Quarter: 2009Q1

REPORT INFORMATION
  Report Type: 
  Country: None (occurrence: None)
  Receive Date: 20090331
  Receipt Date: 20090318
  Transmission Date: 20090719
  Serious: Yes (Hospitalization)
  Sender: FDA-Public Use
  Company Number: 232368K08USA

PATIENT
  Age: 53 Year
  Sex: Male
  Weight: 120 kg

DRUGS (8)
  1. REBIF [Suspect]
     Indication: MULTIPLE SCLEROSIS
     Dosage: 22 MCG, 3 IN 1 WEEKS, SUBCUTANEOUS, 44 MCG, 3 IN 1 WEEKS, SUBCUTANEOUS
     Route: 058
     Dates: start: 20081125, end: 20080101
  2. VALIUM [Concomitant]
  3. MICARDIS [Concomitant]
  4. CLONIDINE [Concomitant]
  5. METOPROLOL TARTRATE [Concomitant]
  6. TOPAMAX [Concomitant]
  7. HYDROCODONE (HYDROCODONE) [Concomitant]
  8. AVIL (IBUPROFEN) [Concomitant]

REACTIONS (8)
  - DEHYDRATION [None]
  - DIARRHOEA [None]
  - FOOD POISONING [None]
  - INJECTION SITE PAIN [None]
  - NAUSEA [None]
  - PYREXIA [None]
  - RENAL DISORDER [None]
  - VOMITING [None]
